FAERS Safety Report 7376511-6 (Version None)
Quarter: 2011Q1

REPORT INFORMATION
  Report Type: 
  Country: None (occurrence: None)
  Receive Date: 20110325
  Receipt Date: 20110317
  Transmission Date: 20110831
  Serious: Yes (Hospitalization)
  Sender: FDA-Public Use
  Company Number: Z0008499A

PATIENT
  Age: 62 Year
  Sex: Female
  Weight: 65.1 kg

DRUGS (4)
  1. OFATUMUMAB [Suspect]
     Indication: LYMPHOMA
     Route: 042
     Dates: start: 20110120
  2. CYTARABINE [Suspect]
     Indication: LYMPHOMA
     Route: 042
     Dates: start: 20110122
  3. DEXAMETHASONE [Suspect]
     Indication: LYMPHOMA
     Route: 042
     Dates: start: 20110120
  4. CISPLATIN [Suspect]
     Indication: LYMPHOMA
     Dosage: 100MGM2 PER DAY
     Route: 042
     Dates: start: 20110120

REACTIONS (1)
  - FEBRILE NEUTROPENIA [None]
